FAERS Safety Report 5426256-4 (Version None)
Quarter: 2007Q3

REPORT INFORMATION
  Report Type: 
  Country: None (occurrence: None)
  Receive Date: 20070827
  Receipt Date: 20070814
  Transmission Date: 20080115
  Serious: Yes (Death)
  Sender: FDA-Public Use
  Company Number: AT-MERCK-0708AUT00008

PATIENT
  Age: 39 Year
  Sex: Male

DRUGS (7)
  1. CANCIDAS [Suspect]
     Indication: BRAIN ABSCESS
     Route: 065
     Dates: start: 20060101, end: 20060101
  2. ANTIMICROBIAL (UNSPECIFIED) [Concomitant]
     Route: 065
  3. FOSFOMYCIN [Concomitant]
     Route: 065
  4. VANCOMYCIN [Concomitant]
     Route: 065
  5. METRONIDAZOLE [Concomitant]
     Route: 065
  6. CATECHOLAMINE [Concomitant]
     Route: 065
  7. VORICONAZOLE [Concomitant]
     Route: 065

REACTIONS (2)
  - DRUG INEFFECTIVE [None]
  - MULTI-ORGAN FAILURE [None]
